FAERS Safety Report 23237630 (Version 1)
Quarter: 2023Q4

REPORT INFORMATION
  Report Type: Report from Study
  Country: ZA (occurrence: ZA)
  Receive Date: 20231128
  Receipt Date: 20231128
  Transmission Date: 20240109
  Serious: Yes (Other)
  Sender: FDA-Public Use
  Company Number: ZA-ABBVIE-5510360

PATIENT
  Age: 85 Year
  Sex: Male

DRUGS (1)
  1. OZURDEX [Suspect]
     Active Substance: DEXAMETHASONE
     Indication: Macular degeneration
     Dosage: TIME INTERVAL: AS NECESSARY: FREQUENCY TEXT: EVERY 4-6 MONTHS
     Route: 031
     Dates: start: 20220922

REACTIONS (2)
  - Retinal oedema [Unknown]
  - Visual impairment [Unknown]
